FAERS Safety Report 24544519 (Version 1)
Quarter: 2024Q4

REPORT INFORMATION
  Report Type: Spontaneous
  Country: CN (occurrence: CN)
  Receive Date: 20241024
  Receipt Date: 20241024
  Transmission Date: 20250115
  Serious: Yes (Life-Threatening)
  Sender: PFIZER
  Company Number: CN-PFIZER INC-PV202400137729

PATIENT
  Age: 70 Year
  Sex: Male
  Weight: 67 kg

DRUGS (4)
  1. AXITINIB [Suspect]
     Active Substance: AXITINIB
     Indication: Renal cancer
     Dosage: 5 MG, 2X/DAY
     Route: 048
     Dates: start: 20241021, end: 20241021
  2. AXITINIB [Suspect]
     Active Substance: AXITINIB
     Dosage: 0.5 DF, 2X/DAY (HALF A TABLET)
     Dates: start: 202308
  3. AXITINIB [Suspect]
     Active Substance: AXITINIB
     Dosage: 1 DF, 2X/DAY (ONE TABLET)
     Dates: start: 202206
  4. SINTILIMAB [Concomitant]
     Active Substance: SINTILIMAB
     Dosage: 200 MG, EVERY 3 WEEKS

REACTIONS (2)
  - Hypertension [Not Recovered/Not Resolved]
  - Oedema peripheral [Not Recovered/Not Resolved]

NARRATIVE: CASE EVENT DATE: 20241021
